FAERS Safety Report 4902291-7 (Version None)
Quarter: 2006Q1

REPORT INFORMATION
  Report Type: 
  Country: None (occurrence: None)
  Receive Date: 20060207
  Receipt Date: 20060201
  Transmission Date: 20060701
  Serious: Yes (Other)
  Sender: FDA-Public Use
  Company Number: PHBS2006BR01744

PATIENT
  Age: 34 Year
  Sex: Female
  Weight: 52 kg

DRUGS (1)
  1. PARLODEL [Suspect]
     Indication: BLOOD PROLACTIN INCREASED
     Dosage: 5 MG/DAY
     Route: 048
     Dates: start: 20060128, end: 20060128

REACTIONS (6)
  - BLOOD PRESSURE DECREASED [None]
  - MALAISE [None]
  - NAUSEA [None]
  - SYNCOPE [None]
  - TINNITUS [None]
  - VOMITING [None]
